FAERS Safety Report 24285871 (Version 1)
Quarter: 2024Q3

REPORT INFORMATION
  Report Type: Report from Study
  Country: DE (occurrence: DE)
  Receive Date: 20240905
  Receipt Date: 20240905
  Transmission Date: 20241016
  Serious: Yes (Hospitalization)
  Sender: ABBVIE
  Company Number: DE-ABBVIE-5875082

PATIENT
  Sex: Female

DRUGS (16)
  1. CARBIDOPA\LEVODOPA [Suspect]
     Active Substance: CARBIDOPA\LEVODOPA
     Indication: Parkinson^s disease
     Dosage: MD: 3.5 ML, CRD: 3.9 ML/H, CRN:3.5 ML/H, ED: 1.5 ML
     Route: 050
     Dates: start: 20190618
  2. CARBIDOPA\LEVODOPA [Suspect]
     Active Substance: CARBIDOPA\LEVODOPA
     Dosage: MD: 3.5 ML, CRD 4.0 ML/H, CRN 4.0 ML/H, ED 1.5 ML
     Route: 050
  3. PREGABALIN [Concomitant]
     Active Substance: PREGABALIN
     Indication: Product used for unknown indication
  4. PREGABALIN [Concomitant]
     Active Substance: PREGABALIN
     Indication: Product used for unknown indication
  5. ASPIRIN [Concomitant]
     Active Substance: ASPIRIN
     Indication: Product used for unknown indication
  6. MIRABEGRON [Concomitant]
     Active Substance: MIRABEGRON
     Indication: Product used for unknown indication
  7. PANTOPRAZOLE SODIUM [Concomitant]
     Active Substance: PANTOPRAZOLE SODIUM
     Indication: Product used for unknown indication
  8. Vigantol [Concomitant]
     Indication: Product used for unknown indication
  9. DIAZEPAM [Concomitant]
     Active Substance: DIAZEPAM
     Indication: Product used for unknown indication
  10. ATORVASTATIN [Concomitant]
     Active Substance: ATORVASTATIN
     Indication: Product used for unknown indication
  11. DOMPERIDONE [Concomitant]
     Active Substance: DOMPERIDONE
     Indication: Product used for unknown indication
  12. VITAMIN B12 [Concomitant]
     Active Substance: CYANOCOBALAMIN
     Indication: Product used for unknown indication
  13. CLOZAPINE [Concomitant]
     Active Substance: CLOZAPINE
     Indication: Product used for unknown indication
  14. TORSEMIDE [Concomitant]
     Active Substance: TORSEMIDE
     Indication: Product used for unknown indication
  15. METAMIZOL [Concomitant]
     Active Substance: METAMIZOLE SODIUM
     Indication: Product used for unknown indication
  16. FERRO-SANOL DUODENAL [Concomitant]
     Active Substance: FERROUS GLYCINE SULFATE
     Indication: Product used for unknown indication

REACTIONS (40)
  - Mobility decreased [Recovering/Resolving]
  - Action tremor [Unknown]
  - Urinary incontinence [Unknown]
  - Chronic kidney disease [Unknown]
  - Intervertebral disc protrusion [Unknown]
  - Balance disorder [Unknown]
  - Burning sensation [Unknown]
  - Bradykinesia [Unknown]
  - Sinusitis [Unknown]
  - Sciatica [Unknown]
  - Muscular weakness [Recovering/Resolving]
  - Reduced facial expression [Unknown]
  - Chorea [Unknown]
  - Nocturia [Unknown]
  - Obesity [Unknown]
  - Dysarthria [Unknown]
  - Muscle rigidity [Unknown]
  - Hypertension [Unknown]
  - Hypoaesthesia [Unknown]
  - Back pain [Unknown]
  - Hallucination [Unknown]
  - Gastrointestinal infection [Unknown]
  - Drug intolerance [Unknown]
  - Orthostatic hypotension [Unknown]
  - Pain in extremity [Unknown]
  - Fall [Unknown]
  - Dizziness postural [Unknown]
  - Constipation [Unknown]
  - Hypertension [Unknown]
  - Diverticulum [Unknown]
  - Polyneuropathy [Unknown]
  - Hiatus hernia [Unknown]
  - Cardiac failure congestive [Unknown]
  - Device kink [Recovered/Resolved]
  - Hypochromic anaemia [Unknown]
  - Weight decreased [Unknown]
  - Movement disorder [Unknown]
  - Dysphonia [Unknown]
  - Tremor [Recovering/Resolving]
  - Iron deficiency [Unknown]

NARRATIVE: CASE EVENT DATE: 20230101
